FAERS Safety Report 20749431 (Version 2)
Quarter: 2023Q1

REPORT INFORMATION
  Report Type: Report from Study
  Country: PA (occurrence: PA)
  Receive Date: 20220426
  Receipt Date: 20230308
  Transmission Date: 20230417
  Serious: Yes (Life-Threatening, Other)
  Sender: FDA-Public Use
  Company Number: PA-NOVARTISPH-NVSC2022PA093321

PATIENT
  Age: 71 Year
  Sex: Female

DRUGS (2)
  1. KISQALI [Suspect]
     Active Substance: RIBOCICLIB
     Indication: Breast cancer metastatic
     Dosage: 600 MG, QD
     Route: 048
     Dates: start: 202106
  2. KISQALI [Suspect]
     Active Substance: RIBOCICLIB
     Dosage: 400 MG, QD
     Route: 048
     Dates: start: 202106

REACTIONS (9)
  - Platelet count decreased [Unknown]
  - Haemoglobin abnormal [Unknown]
  - Neutrophil count decreased [Unknown]
  - Coronavirus infection [Unknown]
  - Decreased immune responsiveness [Unknown]
  - Condition aggravated [Unknown]
  - Skeletal injury [Recovering/Resolving]
  - Bone disorder [Unknown]
  - Transaminases decreased [Unknown]

NARRATIVE: CASE EVENT DATE: 20230301
